FAERS Safety Report 18075297 (Version 1)
Quarter: 2020Q3

REPORT INFORMATION
  Report Type: Spontaneous
  Country: US (occurrence: US)
  Receive Date: 20200727
  Receipt Date: 20200727
  Transmission Date: 20201103
  Serious: No
  Sender: FDA-Public Use
  Company Number: US-ABBVIE-19K-163-3178436-00

PATIENT
  Sex: Female

DRUGS (1)
  1. SYNTHROID [Suspect]
     Active Substance: LEVOTHYROXINE SODIUM
     Indication: HYPOTHYROIDISM
     Route: 048
     Dates: start: 1994

REACTIONS (12)
  - Vitamin B12 deficiency [Unknown]
  - Thyroid function test abnormal [Recovered/Resolved]
  - Cognitive disorder [Unknown]
  - Gene mutation [Unknown]
  - Depression [Unknown]
  - Feeling hot [Unknown]
  - Autoimmune thyroiditis [Unknown]
  - Hyperhidrosis [Unknown]
  - Alopecia [Not Recovered/Not Resolved]
  - Premature menopause [Unknown]
  - Irritability [Unknown]
  - Body temperature increased [Unknown]
